FAERS Safety Report 6816483-3 (Version None)
Quarter: 2010Q3

REPORT INFORMATION
  Report Type: 
  Country: None (occurrence: None)
  Receive Date: 20100705
  Receipt Date: 20100622
  Transmission Date: 20110219
  Serious: Yes (Other)
  Sender: FDA-Public Use
  Company Number: PHHY2010FR40631

PATIENT
  Age: 75 Year
  Sex: Male

DRUGS (4)
  1. COTAREG [Suspect]
     Indication: HYPERTENSION
     Dosage: 160/25 MG
  2. CALDINE [Concomitant]
     Dosage: UNK
  3. HYPERIUM [Concomitant]
  4. GLUCOPHAGE [Concomitant]

REACTIONS (2)
  - LARYNGEAL OEDEMA [None]
  - URTICARIA [None]
